FAERS Safety Report 8184707-9 (Version None)
Quarter: 2012Q1

REPORT INFORMATION
  Report Type: 
  Country: None (occurrence: None)
  Receive Date: 20120305
  Receipt Date: 20120305
  Transmission Date: 20120608
  Serious: Yes (Hospitalization)
  Sender: FDA-Public Use
  Company Number: None

PATIENT
  Age: 60 Year
  Sex: Male

DRUGS (1)
  1. LIDOCAINE [Suspect]
     Indication: BIOPSY PROSTATE
     Dosage: 2% INJECTABLE
     Dates: start: 20120213, end: 20120213

REACTIONS (3)
  - TOXICITY TO VARIOUS AGENTS [None]
  - MEDICATION ERROR [None]
  - WRONG DRUG ADMINISTERED [None]
